FAERS Safety Report 19060811 (Version 1)
Quarter: 2021Q1

REPORT INFORMATION
  Report Type: Spontaneous
  Country: DE (occurrence: DE)
  Receive Date: 20210325
  Receipt Date: 20210325
  Transmission Date: 20210420
  Serious: Yes (Death, Hospitalization)
  Sender: FDA-Public Use
  Company Number: DE-009507513-2103DEU006205

PATIENT
  Age: 60 Year
  Sex: Female

DRUGS (5)
  1. DAPTOMYCIN. [Suspect]
     Active Substance: DAPTOMYCIN
     Dosage: UNK
  2. PASIREOTIDE. [Suspect]
     Active Substance: PASIREOTIDE
     Dosage: UNK
  3. CASPOFUNGIN ACETATE. [Suspect]
     Active Substance: CASPOFUNGIN ACETATE
     Dosage: UNK
  4. MEROPENEM. [Suspect]
     Active Substance: MEROPENEM
     Dosage: UNK
  5. AFINITOR [Suspect]
     Active Substance: EVEROLIMUS
     Indication: NEUROENDOCRINE TUMOUR
     Dosage: UNK

REACTIONS (8)
  - Pneumothorax [Fatal]
  - Acute kidney injury [Fatal]
  - Pleural effusion [Fatal]
  - Acute hepatic failure [Fatal]
  - Rash [Fatal]
  - Fungal sepsis [Fatal]
  - Cardiomyopathy [Fatal]
  - General physical health deterioration [Fatal]

NARRATIVE: CASE EVENT DATE: 20150516
